FAERS Safety Report 10529112 (Version 2)
Quarter: 2014Q4

REPORT INFORMATION
  Report Type: Spontaneous
  Country: US (occurrence: None)
  Receive Date: 20141017
  Receipt Date: 20141118
  Transmission Date: 20150528
  Serious: Yes (Hospitalization, Other)
  Sender: FDA-Public Use
  Company Number: 2014US008590

PATIENT
  Sex: Female
  Weight: 83.9 kg

DRUGS (3)
  1. OMEPRAZOLE (OMEPRAZOLE) [Concomitant]
     Active Substance: OMEPRAZOLE
  2. GLASSIA [Suspect]
     Active Substance: .ALPHA.1-PROTEINASE INHIBITOR HUMAN
     Indication: ALPHA-1 ANTI-TRYPSIN DEFICIENCY
     Route: 042
     Dates: start: 2013, end: 2013
  3. CANASA (MESALAZINE) [Concomitant]

REACTIONS (3)
  - Diarrhoea [None]
  - Abdominal distension [None]
  - Cholelithiasis [None]

NARRATIVE: CASE EVENT DATE: 2013
